FAERS Safety Report 7402941-X (Version None)
Quarter: 2011Q2

REPORT INFORMATION
  Report Type: 
  Country: None (occurrence: None)
  Receive Date: 20110401
  Receipt Date: 20110329
  Transmission Date: 20111010
  Serious: Yes (Other)
  Sender: FDA-Public Use
  Company Number: A0920514A

PATIENT
  Age: 40 Year
  Sex: Male

DRUGS (1)
  1. ASPIRIN + CAFFEINE + SALICYLAMIDE (FORMULATION UNKNOWN) (ASPIRIN+CAFFE [Suspect]
     Dosage: 10 PACKAGE / PER DAY / ORAL
     Route: 048

REACTIONS (3)
  - GASTRIC ULCER [None]
  - INCORRECT DOSE ADMINISTERED [None]
  - DRUG ADMINISTRATION ERROR [None]
